FAERS Safety Report 25230395 (Version 2)
Quarter: 2025Q3

REPORT INFORMATION
  Report Type: Spontaneous
  Country: US (occurrence: US)
  Receive Date: 20250423
  Receipt Date: 20250717
  Transmission Date: 20251021
  Serious: No
  Sender: LUNDBECK
  Company Number: US-LUNDBECK-DKLU4013360

PATIENT
  Age: 60 Year
  Sex: Female
  Weight: 78.335 kg

DRUGS (1)
  1. VYEPTI [Suspect]
     Active Substance: EPTINEZUMAB-JJMR
     Indication: Product used for unknown indication
     Dosage: 100 MILLIGRAM
     Route: 041
     Dates: start: 20250131

REACTIONS (2)
  - Headache [Unknown]
  - Bradycardia [Unknown]

NARRATIVE: CASE EVENT DATE: 20250131
